FAERS Safety Report 5257103-1 (Version None)
Quarter: 2007Q1

REPORT INFORMATION
  Report Type: 
  Country: None (occurrence: None)
  Receive Date: 20070307
  Receipt Date: 20070220
  Transmission Date: 20070707
  Serious: Yes (Hospitalization, Other)
  Sender: FDA-Public Use
  Company Number: AR-ELI_LILLY_AND_COMPANY-US_0511123444

PATIENT
  Age: 60 Year
  Sex: Female
  Weight: 65 kg

DRUGS (5)
  1. TERIPARATIDE [Suspect]
     Indication: OSTEOPOROSIS
     Dosage: 20 UG, DAILY (1/D)
     Route: 058
     Dates: start: 20040316
  2. *PLACEBO [Suspect]
     Indication: OSTEOPOROSIS
     Dosage: 10 UG, DAILY (1/D)
     Route: 048
     Dates: start: 20040316
  3. VITAMIN D [Concomitant]
     Indication: OSTEOPOROSIS
     Dosage: UNK, UNKNOWN
     Dates: start: 19961209
  4. METICORTEN [Concomitant]
     Indication: MYALGIA
     Dosage: UNK, UNKNOWN
     Dates: start: 20040522
  5. CALCIUM [Concomitant]
     Indication: OSTEOPOROSIS
     Dosage: UNK, UNKNOWN
     Dates: start: 19961209

REACTIONS (2)
  - MENINGITIS [None]
  - MULTIPLE MYELOMA [None]
